FAERS Safety Report 18541703 (Version 1)
Quarter: 2020Q4

REPORT INFORMATION
  Report Type: Report from Study
  Country: AU (occurrence: AU)
  Receive Date: 20201124
  Receipt Date: 20201124
  Transmission Date: 20210114
  Serious: Yes (Other)
  Sender: FDA-Public Use
  Company Number: AU-MYLANLABS-2020M1097124

PATIENT
  Age: 73 Year
  Sex: Male
  Weight: 112 kg

DRUGS (2)
  1. CLARITHROMYCIN. [Suspect]
     Active Substance: CLARITHROMYCIN
     Indication: MYCOBACTERIUM ULCERANS INFECTION
     Dosage: 8.9 MILLIGRAM/KILOGRAM
     Route: 048
  2. RIFAMPICIN [Suspect]
     Active Substance: RIFAMPIN
     Indication: MYCOBACTERIUM ULCERANS INFECTION
     Dosage: 5.4 MILLIGRAM/KILOGRAM
     Route: 048

REACTIONS (2)
  - Paradoxical drug reaction [Unknown]
  - Treatment failure [Unknown]
